FAERS Safety Report 10097536 (Version 1)
Quarter: 2014Q2

REPORT INFORMATION
  Report Type: Spontaneous
  Country: US (occurrence: US)
  Receive Date: 20140423
  Receipt Date: 20140423
  Transmission Date: 20141212
  Serious: Yes (Hospitalization)
  Sender: FDA-Public Use
  Company Number: US-BIOGENIDEC-2014BI037047

PATIENT
  Sex: Male

DRUGS (1)
  1. TYSABRI [Suspect]
     Indication: MULTIPLE SCLEROSIS
     Route: 042
     Dates: start: 20121107

REACTIONS (4)
  - Multiple sclerosis [Recovered/Resolved]
  - Muscle spasticity [Recovered/Resolved]
  - Loss of control of legs [Recovered/Resolved]
  - Memory impairment [Not Recovered/Not Resolved]
